FAERS Safety Report 6014559-4 (Version None)
Quarter: 2008Q4

REPORT INFORMATION
  Report Type: 
  Country: None (occurrence: None)
  Receive Date: 20081219
  Receipt Date: 20080820
  Transmission Date: 20090506
  Serious: No
  Sender: FDA-Public Use
  Company Number: A0743528A

PATIENT
  Age: 55 Year
  Sex: Male

DRUGS (4)
  1. AVODART [Suspect]
     Indication: BENIGN PROSTATIC HYPERPLASIA
     Dosage: .5MG PER DAY
     Route: 048
     Dates: start: 20080619, end: 20080703
  2. LOTREL [Concomitant]
  3. TOPROL-XL [Concomitant]
  4. NEXIUM [Concomitant]

REACTIONS (6)
  - COLD SWEAT [None]
  - ERECTILE DYSFUNCTION [None]
  - LOSS OF LIBIDO [None]
  - PENILE SIZE REDUCED [None]
  - PENIS DISORDER [None]
  - PROSTATIC DISORDER [None]
